FAERS Safety Report 24245019 (Version 1)
Quarter: 2024Q3

REPORT INFORMATION
  Report Type: Spontaneous
  Country: US (occurrence: US)
  Receive Date: 20240823
  Receipt Date: 20240823
  Transmission Date: 20241017
  Serious: Yes (Other)
  Sender: GILEAD
  Company Number: US-GILEAD-2024-0680949

PATIENT
  Age: 37 Year
  Sex: Male

DRUGS (1)
  1. TECARTUS [Suspect]
     Active Substance: BREXUCABTAGENE AUTOLEUCEL
     Indication: B-cell type acute leukaemia
     Dosage: 1X 10E06
     Route: 065
     Dates: start: 20240517, end: 20240517

REACTIONS (6)
  - Enterococcal bacteraemia [Unknown]
  - Sepsis [Unknown]
  - Immune effector cell-associated neurotoxicity syndrome [Unknown]
  - Lethargy [Recovered/Resolved]
  - Confusional state [Recovered/Resolved]
  - Body temperature increased [Recovered/Resolved]

NARRATIVE: CASE EVENT DATE: 20240517
